FAERS Safety Report 13760045 (Version 1)
Quarter: 2017Q3

REPORT INFORMATION
  Report Type: Spontaneous
  Country: CN (occurrence: CN)
  Receive Date: 20170717
  Receipt Date: 20170717
  Transmission Date: 20171127
  Serious: Yes (Hospitalization)
  Sender: FDA-Public Use
  Company Number: CN-BRISTOL-MYERS SQUIBB COMPANY-BMS-2017-063543

PATIENT
  Age: 63 Year
  Sex: Female

DRUGS (3)
  1. LAMIVUDINE. [Suspect]
     Active Substance: LAMIVUDINE
     Indication: HIV INFECTION
     Route: 048
  2. EFAVIRENZ [Suspect]
     Active Substance: EFAVIRENZ
     Indication: HIV INFECTION
     Dosage: 1 DF, UNK
     Route: 048
     Dates: start: 20170410
  3. TENOFOVIR [Suspect]
     Active Substance: TENOFOVIR
     Indication: HIV INFECTION
     Route: 048

REACTIONS (2)
  - Rash [Recovering/Resolving]
  - Oral herpes [Recovering/Resolving]

NARRATIVE: CASE EVENT DATE: 20170515
